FAERS Safety Report 7405236-3 (Version None)
Quarter: 2011Q2

REPORT INFORMATION
  Report Type: 
  Country: None (occurrence: None)
  Receive Date: 20110411
  Receipt Date: 20101005
  Transmission Date: 20111010
  Serious: Yes (Hospitalization, Other)
  Sender: FDA-Public Use
  Company Number: US-BAYER-201029784NA

PATIENT
  Age: 22 Year
  Sex: Female
  Weight: 86.168 kg

DRUGS (7)
  1. LEVOTHYROXINE [Concomitant]
     Indication: HYPOTHYROIDISM
  2. YAZ [Suspect]
     Indication: CONTRACEPTION
     Dosage: UNK UNK, UNK
     Route: 048
     Dates: start: 20080201, end: 20091101
  3. YAZ [Suspect]
     Dosage: UNK
     Dates: start: 20080201, end: 20091101
  4. NAPROXEN [Concomitant]
  5. YAZ [Suspect]
     Dosage: UNK
     Dates: start: 20080201, end: 20091101
  6. IBUPROFEN [Concomitant]
  7. MAXALT [Concomitant]

REACTIONS (2)
  - CHOLECYSTITIS CHRONIC [None]
  - GALLBLADDER DISORDER [None]
